FAERS Safety Report 6977902-5 (Version None)
Quarter: 2010Q3

REPORT INFORMATION
  Report Type: 
  Country: None (occurrence: None)
  Receive Date: 20100913
  Receipt Date: 20100901
  Transmission Date: 20110219
  Serious: No
  Sender: FDA-Public Use
  Company Number: US-US-EMD SERONO, INC.-230627J10USA

PATIENT
  Sex: Female

DRUGS (2)
  1. REBIF [Suspect]
     Indication: MULTIPLE SCLEROSIS
     Route: 058
     Dates: start: 20040705, end: 20091201
  2. REBIF [Suspect]
     Route: 058
     Dates: start: 20100101

REACTIONS (3)
  - ANORECTAL DISORDER [None]
  - HAEMORRHOIDS [None]
  - SINUSITIS [None]
